FAERS Safety Report 24671024 (Version 1)
Quarter: 2024Q4

REPORT INFORMATION
  Report Type: Spontaneous
  Country: DE (occurrence: DE)
  Receive Date: 20241127
  Receipt Date: 20241127
  Transmission Date: 20250115
  Serious: Yes (Other)
  Sender: SANDOZ
  Company Number: DE-BRISTOL-MYERS SQUIBB COMPANY-2024-179001

PATIENT
  Age: 69 Year
  Sex: Female
  Weight: 51 kg

DRUGS (17)
  1. CARBOPLATIN [Suspect]
     Active Substance: CARBOPLATIN
     Indication: Product used for unknown indication
     Dosage: 2 CYCLESUNK
     Route: 065
     Dates: start: 20230302
  2. IPILIMUMAB [Suspect]
     Active Substance: IPILIMUMAB
     Dosage: UNK
     Route: 065
     Dates: start: 20230302, end: 20231101
  3. IPILIMUMAB [Suspect]
     Active Substance: IPILIMUMAB
     Indication: Non-small cell lung cancer
     Dosage: DOSE AND FREQUENCY: UNAVAILABLEUNK
     Route: 065
     Dates: start: 20230219
  4. NIVOLUMAB [Suspect]
     Active Substance: NIVOLUMAB
     Dosage: UNK
     Route: 065
     Dates: start: 20230302, end: 20231101
  5. NIVOLUMAB [Suspect]
     Active Substance: NIVOLUMAB
     Dosage: UNK
     Route: 065
     Dates: start: 20230302, end: 20231101
  6. NIVOLUMAB [Suspect]
     Active Substance: NIVOLUMAB
     Dosage: UNK
     Route: 065
     Dates: start: 20230302, end: 20231101
  7. NIVOLUMAB [Suspect]
     Active Substance: NIVOLUMAB
     Indication: Non-small cell lung cancer
     Dosage: DOSE AND FREQUENCY: UNAVAILABLEUNK
     Route: 065
     Dates: start: 20230219
  8. NIVOLUMAB [Suspect]
     Active Substance: NIVOLUMAB
     Dosage: DOSE AND FREQUENCY: UNAVAILABLEUNK
     Route: 065
     Dates: start: 20230219
  9. NIVOLUMAB [Suspect]
     Active Substance: NIVOLUMAB
     Dosage: DOSE AND FREQUENCY: UNAVAILABLEUNK
     Route: 065
     Dates: start: 20230219
  10. PEMETREXED [Suspect]
     Active Substance: PEMETREXED
     Indication: Product used for unknown indication
     Dosage: UNK
     Route: 065
     Dates: start: 20230302
  11. PEMETREXED [Suspect]
     Active Substance: PEMETREXED
     Dosage: UNK
     Route: 065
     Dates: start: 20230302
  12. PEMETREXED [Suspect]
     Active Substance: PEMETREXED
     Dosage: UNK
     Route: 065
     Dates: start: 20230302
  13. ATORVASTATIN [Concomitant]
     Active Substance: ATORVASTATIN
     Indication: Product used for unknown indication
     Dosage: 40 MG, QD
     Route: 065
  14. LORLATINIB [Concomitant]
     Active Substance: LORLATINIB
     Indication: Product used for unknown indication
     Dosage: UNK
     Route: 065
  15. LORLATINIB [Concomitant]
     Active Substance: LORLATINIB
     Dosage: UNK
     Route: 065
  16. LORLATINIB [Concomitant]
     Active Substance: LORLATINIB
     Dosage: UNK
     Route: 065
  17. PANTOPRAZOLE [Concomitant]
     Active Substance: PANTOPRAZOLE
     Indication: Product used for unknown indication
     Dosage: 40 MG, QD
     Route: 065

REACTIONS (4)
  - Non-small cell lung cancer [Unknown]
  - General physical health deterioration [Unknown]
  - Psoriasis [Unknown]
  - Off label use [Unknown]
